FAERS Safety Report 4422463-8 (Version None)
Quarter: 2004Q3

REPORT INFORMATION
  Report Type: 
  Country: None (occurrence: None)
  Receive Date: 20040810
  Receipt Date: 20040729
  Transmission Date: 20050211
  Serious: Yes (Other)
  Sender: FDA-Public Use
  Company Number: JP-JNJFOC-20040600405

PATIENT
  Age: 82 Year
  Sex: Male

DRUGS (9)
  1. ITRIZOLE [Suspect]
     Indication: FUNGAEMIA
     Route: 049
  2. SODIUM ALGINATE [Concomitant]
     Route: 049
     Dates: start: 20040205, end: 20040617
  3. ALUMINIUM HYDROXIDE-MAGNESIUM HYDROXIDE [Concomitant]
     Route: 049
     Dates: start: 20040209, end: 20040617
  4. DIFLUCORTOLONE VALERATE-LIDOCAINE [Concomitant]
     Route: 049
  5. VALSARTAN [Concomitant]
     Route: 049
     Dates: start: 20040225, end: 20040617
  6. LEVOTHYROXINE SODIUM [Concomitant]
     Route: 049
     Dates: start: 20040227, end: 20040617
  7. AZATHIOPRINE [Concomitant]
     Route: 049
     Dates: start: 20040228, end: 20040617
  8. ALFACALCIDOL [Concomitant]
     Route: 049
     Dates: start: 20040323, end: 20040617
  9. METHYLPREDNISOLONE [Concomitant]
     Route: 049
     Dates: start: 20040503, end: 20040516

REACTIONS (2)
  - PNEUMONIA [None]
  - THROMBOCYTOPENIA [None]
